FAERS Safety Report 6439777-2 (Version None)
Quarter: 2009Q4

REPORT INFORMATION
  Report Type: 
  Country: None (occurrence: None)
  Receive Date: 20091112
  Receipt Date: 20091112
  Transmission Date: 20100525
  Serious: Yes (Hospitalization)
  Sender: FDA-Public Use
  Company Number: None

PATIENT
  Age: 46 Year
  Sex: Male
  Weight: 95.709 kg

DRUGS (2)
  1. LITHIUM CARBONATE [Suspect]
     Indication: SCHIZOPHRENIA, PARANOID TYPE
     Dosage: 300MG BID PO
     Route: 048
     Dates: start: 20081101, end: 20091001
  2. INDOMETHACIN [Suspect]
     Indication: ARTHRALGIA
     Dosage: 25MG QID PO
     Route: 048
     Dates: start: 20090901, end: 20091001

REACTIONS (1)
  - RENAL FAILURE ACUTE [None]
